FAERS Safety Report 14920681 (Version 2)
Quarter: 2018Q2

REPORT INFORMATION
  Report Type: Spontaneous
  Country: AR (occurrence: AR)
  Receive Date: 20180521
  Receipt Date: 20180524
  Transmission Date: 20180711
  Serious: Yes (Death, Other)
  Sender: FDA-Public Use
  Company Number: AR-BAYER-2018-096853

PATIENT
  Age: 56 Year
  Sex: Male

DRUGS (2)
  1. NEXAVAR [Suspect]
     Active Substance: SORAFENIB
     Indication: HEPATOCELLULAR CARCINOMA
     Dosage: 400 MG, QD
     Route: 048
     Dates: start: 201410
  2. NEXAVAR [Suspect]
     Active Substance: SORAFENIB
     Indication: HEPATOCELLULAR CARCINOMA
     Dosage: 400 MG, QD
     Route: 048
     Dates: end: 201705

REACTIONS (14)
  - Post procedural complication [Fatal]
  - Hypertransaminasaemia [None]
  - Spinal column injury [Unknown]
  - Pain [None]
  - Spinal compression fracture [Unknown]
  - Osteolysis [Unknown]
  - Off label use [None]
  - Hepatic steatosis [None]
  - Mucosal inflammation [Unknown]
  - Myalgia [Unknown]
  - Hypovolaemic shock [None]
  - Procedural haemorrhage [None]
  - Asthenia [Unknown]
  - Arthralgia [Unknown]

NARRATIVE: CASE EVENT DATE: 201410
